FAERS Safety Report 26000353 (Version 1)
Quarter: 2025Q4

REPORT INFORMATION
  Report Type: Spontaneous
  Country: US (occurrence: None)
  Receive Date: 20251104
  Receipt Date: 20251104
  Transmission Date: 20260118
  Serious: No
  Sender: FDA-CTU
  Company Number: None

PATIENT
  Age: 33 Year
  Sex: Female
  Weight: 77.56 kg

DRUGS (1)
  1. BEYFORTUS [Suspect]
     Active Substance: NIRSEVIMAB-ALIP
     Dosage: 0.5 ML 1 TIME DOSE INTRAMUSCULAR ?
     Route: 030

REACTIONS (2)
  - Exposure during pregnancy [None]
  - Accidental exposure to product [None]

NARRATIVE: CASE EVENT DATE: 20251103
